FAERS Safety Report 15200591 (Version 2)
Quarter: 2018Q3

REPORT INFORMATION
  Report Type: Report from Study
  Country: US (occurrence: US)
  Receive Date: 20180726
  Receipt Date: 20180828
  Transmission Date: 20181010
  Serious: Yes (Other)
  Sender: FDA-Public Use
  Company Number: US-ROCHE-2158711

PATIENT
  Age: 53 Year
  Sex: Female
  Weight: 127.12 kg

DRUGS (1)
  1. OCREVUS [Suspect]
     Active Substance: OCRELIZUMAB
     Indication: MULTIPLE SCLEROSIS
     Route: 065
     Dates: start: 20170817

REACTIONS (4)
  - Fluid retention [Unknown]
  - Skin ulcer [Not Recovered/Not Resolved]
  - Skin wound [Unknown]
  - Wound infection [Recovered/Resolved]

NARRATIVE: CASE EVENT DATE: 201805
